FAERS Safety Report 18510163 (Version 1)
Quarter: 2020Q4

REPORT INFORMATION
  Report Type: Spontaneous
  Country: DE (occurrence: DE)
  Receive Date: 20201117
  Receipt Date: 20201117
  Transmission Date: 20210114
  Serious: Yes (Life-Threatening, Hospitalization, Other)
  Sender: FDA-Public Use
  Company Number: DE-TEVA-2020-DE-1848578

PATIENT
  Age: 86 Year
  Sex: Female

DRUGS (12)
  1. METAMIZOL [Concomitant]
     Active Substance: METAMIZOLE SODIUM
     Dosage: 500 MG, 4X,
     Route: 048
  2. TORASEMID [Concomitant]
     Active Substance: TORSEMIDE
     Dosage: 2.5 MILLIGRAM DAILY; 1-0-0-0
     Route: 048
  3. COLECALCIFEROL [Concomitant]
     Active Substance: CHOLECALCIFEROL
     Dosage: 20,000 IU / WEEK, 1X
     Route: 048
  4. OXYCODONE [Concomitant]
     Active Substance: OXYCODONE
     Dosage: 40 MILLIGRAM DAILY; 1-0-1-0, EXTENDED-RELEASE TABLETS
     Route: 048
  5. AMLODIPINE [Concomitant]
     Active Substance: AMLODIPINE BESYLATE
     Dosage: 10 MILLIGRAM DAILY; 1-0-1-0
     Route: 048
  6. RIVAROXABAN [Concomitant]
     Active Substance: RIVAROXABAN
     Dosage: 20 MILLIGRAM DAILY; 1-0-0-0
     Route: 048
  7. METOPROLOL. [Suspect]
     Active Substance: METOPROLOL
     Dosage: 95 MG, 1-0-0.5-0, SUSTAINED-RELEASE TABLETS
     Route: 048
  8. CANDESARTAN. [Concomitant]
     Active Substance: CANDESARTAN
     Dosage: 4 MILLIGRAM DAILY; 1-0-0-0
     Route: 048
  9. CELECOXIB. [Concomitant]
     Active Substance: CELECOXIB
     Dosage: 100 MG, IF NECESSARY
     Route: 048
  10. LEVOTHYROXINE SODIUM. [Concomitant]
     Active Substance: LEVOTHYROXINE SODIUM
     Dosage: 125 MICROGRAM DAILY; 1-0-0-0
     Route: 048
  11. SALBUTAMOL [Concomitant]
     Active Substance: ALBUTEROL
     Dosage: 0.1 MG, 2X, METERED DOSE AEROSOL
     Route: 055
  12. FORMOTEROL [Concomitant]
     Active Substance: FORMOTEROL
     Dosage: 24 MICROGRAM DAILY; 1-0-1-0, AEROSOL DOSING
     Route: 055

REACTIONS (6)
  - Syncope [Unknown]
  - Hyperhidrosis [Unknown]
  - Palpitations [Unknown]
  - Tachycardia [Unknown]
  - Bradycardia [Unknown]
  - Dizziness [Unknown]
